FAERS Safety Report 11603035 (Version 1)
Quarter: 2015Q4

REPORT INFORMATION
  Report Type: Spontaneous
  Country: US (occurrence: US)
  Receive Date: 20151006
  Receipt Date: 20151006
  Transmission Date: 20160304
  Serious: No
  Sender: FDA-Public Use
  Company Number: US-AMGEN-USASP2015096921

PATIENT
  Age: 67 Year
  Sex: Female

DRUGS (1)
  1. PROLIA [Suspect]
     Active Substance: DENOSUMAB
     Indication: PRODUCT USED FOR UNKNOWN INDICATION
     Dosage: UNK, UNK
     Route: 065
     Dates: start: 201503

REACTIONS (7)
  - Micturition disorder [Unknown]
  - Fatigue [Unknown]
  - Activities of daily living impaired [Unknown]
  - Pain [Recovered/Resolved]
  - Presyncope [Unknown]
  - Feeling abnormal [Unknown]
  - Chills [Unknown]

NARRATIVE: CASE EVENT DATE: 2015
